FAERS Safety Report 6996876-4 (Version None)
Quarter: 2010Q3

REPORT INFORMATION
  Report Type: 
  Country: None (occurrence: None)
  Receive Date: 20100918
  Receipt Date: 20090901
  Transmission Date: 20110219
  Serious: No
  Sender: FDA-Public Use
  Company Number: US-WYE-H10437609

PATIENT
  Sex: Female
  Weight: 77.18 kg

DRUGS (3)
  1. PRISTIQ [Suspect]
     Indication: DEPRESSION
     Route: 048
     Dates: start: 20090601, end: 20090701
  2. ATENOLOL [Concomitant]
  3. VYTORIN [Concomitant]

REACTIONS (1)
  - POLYURIA [None]
